FAERS Safety Report 15996324 (Version 1)
Quarter: 2019Q1

REPORT INFORMATION
  Report Type: Report from Study
  Country: US (occurrence: US)
  Receive Date: 20190222
  Receipt Date: 20190222
  Transmission Date: 20190418
  Serious: Yes (Hospitalization)
  Sender: FDA-Public Use
  Company Number: US-ACTELION-A-US2019-186554

PATIENT
  Age: 64 Year
  Sex: Female
  Weight: 72.56 kg

DRUGS (4)
  1. SILDENAFIL CITRATE. [Concomitant]
     Active Substance: SILDENAFIL CITRATE
  2. OXYGEN. [Concomitant]
     Active Substance: OXYGEN
     Dosage: 3 L, PER MIN
  3. LETAIRIS [Concomitant]
     Active Substance: AMBRISENTAN
  4. VELETRI [Suspect]
     Active Substance: EPOPROSTENOL
     Indication: PULMONARY ARTERIAL HYPERTENSION
     Dosage: 28 NG/KG, PER MIN
     Route: 042

REACTIONS (9)
  - Head injury [Unknown]
  - Weight decreased [Unknown]
  - Injury [Unknown]
  - Unresponsive to stimuli [Unknown]
  - Traumatic intracranial haemorrhage [Unknown]
  - Syncope [Unknown]
  - Fall [Unknown]
  - Unevaluable event [Unknown]
  - Hypophagia [Unknown]

NARRATIVE: CASE EVENT DATE: 20190210
